FAERS Safety Report 11709232 (Version 1)
Quarter: 2015Q4

REPORT INFORMATION
  Report Type: Spontaneous
  Country: US (occurrence: US)
  Receive Date: 20151104
  Receipt Date: 20151104
  Transmission Date: 20160304
  Serious: No
  Sender: FDA-Public Use
  Company Number: US-ELI_LILLY_AND_COMPANY-US201106005526

PATIENT
  Age: 73 Year
  Sex: Female
  Weight: 52 kg

DRUGS (13)
  1. RESTORIL [Concomitant]
     Active Substance: TEMAZEPAM
     Indication: INSOMNIA
     Dosage: UNK, PRN
  2. VITAMIN D [Concomitant]
     Active Substance: CHOLECALCIFEROL
  3. CENTRUM [Concomitant]
     Active Substance: VITAMINS
  4. OSCAL [Concomitant]
     Active Substance: CALCIUM CARBONATE
     Dosage: UNK, BID
  5. VITAMIN C [Concomitant]
     Active Substance: ASCORBIC ACID
  6. METAMUCIL [Concomitant]
     Active Substance: PLANTAGO SEED
  7. CALCIUM W/VITAMIN D NOS [Concomitant]
     Active Substance: CALCIUM\VITAMIN D
  8. FISH OIL [Concomitant]
     Active Substance: FISH OIL
  9. FORTEO [Suspect]
     Active Substance: TERIPARATIDE
     Indication: OSTEOPOROSIS
     Dosage: 20 UG, QD
     Route: 058
     Dates: start: 201005
  10. FORTEO [Suspect]
     Active Substance: TERIPARATIDE
     Dosage: 20 UG, QD
     Route: 058
  11. PRILOSEC [Concomitant]
     Active Substance: OMEPRAZOLE MAGNESIUM
     Indication: GASTROOESOPHAGEAL REFLUX DISEASE
  12. BABY ASPIRIN [Concomitant]
     Active Substance: ASPIRIN
  13. COLACE [Concomitant]
     Active Substance: DOCUSATE SODIUM

REACTIONS (5)
  - Dizziness [Recovered/Resolved]
  - Mass [Unknown]
  - Limb injury [Unknown]
  - Expired product administered [Unknown]
  - Anxiety [Unknown]

NARRATIVE: CASE EVENT DATE: 201005
